FAERS Safety Report 16309968 (Version 1)
Quarter: 2019Q2

REPORT INFORMATION
  Report Type: Spontaneous
  Country: MY (occurrence: MY)
  Receive Date: 20190513
  Receipt Date: 20190513
  Transmission Date: 20190711
  Serious: Yes (Disabling)
  Sender: FDA-Public Use
  Company Number: None

PATIENT
  Age: 51 Year
  Sex: Male
  Weight: 77 kg

DRUGS (1)
  1. CURAM 1000MG [Suspect]
     Active Substance: AMOXICILLIN\CLAVULANATE POTASSIUM
     Indication: ANGINA PECTORIS
     Dosage: ?          QUANTITY:12 TABLET(S);?
     Dates: start: 20190506, end: 20190510

REACTIONS (2)
  - Product quality issue [None]
  - Drug ineffective [None]

NARRATIVE: CASE EVENT DATE: 20190506
